FAERS Safety Report 5475526-2 (Version None)
Quarter: 2007Q3

REPORT INFORMATION
  Report Type: 
  Country: None (occurrence: None)
  Receive Date: 20070905
  Receipt Date: 20070219
  Transmission Date: 20080115
  Serious: Yes (Other)
  Sender: FDA-Public Use
  Company Number: 2006112797

PATIENT
  Age: 80 Year
  Sex: Female
  Weight: 54.4 kg

DRUGS (1)
  1. DETROL [Suspect]
     Dates: end: 20060701

REACTIONS (1)
  - DYSPEPSIA [None]
